FAERS Safety Report 5113384-6 (Version None)
Quarter: 2006Q3

REPORT INFORMATION
  Report Type: 
  Country: None (occurrence: None)
  Receive Date: 20060920
  Receipt Date: 20060910
  Transmission Date: 20061208
  Serious: Yes (Life-Threatening)
  Sender: FDA-Public Use
  Company Number: MEDI-0004913

PATIENT
  Age: 50 Year
  Sex: Male

DRUGS (4)
  1. ETHYOL [Suspect]
     Indication: RADIOTHERAPY
     Dosage: 500 MG, 45 MINUTES BEFORE RADIOTHERAPY, SUBCUTANEOUS
     Route: 058
     Dates: start: 20060902
  2. RADIATION THERAPY [Concomitant]
  3. CISPLATIN [Concomitant]
  4. UNKNOWN H3 ANTAGONIST DRUG [Concomitant]

REACTIONS (3)
  - BLOOD PRESSURE DECREASED [None]
  - FALL [None]
  - FOAMING AT MOUTH [None]
